FAERS Safety Report 4649668-5 (Version None)
Quarter: 2005Q2

REPORT INFORMATION
  Report Type: 
  Country: None (occurrence: None)
  Receive Date: 20050502
  Receipt Date: 20050421
  Transmission Date: 20051028
  Serious: Yes (Hospitalization)
  Sender: FDA-Public Use
  Company Number: JP-BRISTOL-MYERS SQUIBB COMPANY-12948279

PATIENT
  Age: 52 Year
  Sex: Female

DRUGS (5)
  1. ENDOXAN [Suspect]
     Indication: BREAST CANCER
     Dosage: FORMULATION:  TABLET.  LAST DOSE:  05-NOV-2003
     Route: 048
     Dates: start: 20020315, end: 20020315
  2. FURTULON [Concomitant]
     Dates: start: 20010105, end: 20031105
  3. HYSRON [Concomitant]
     Dates: start: 20020315, end: 20031105
  4. ASPIRIN [Concomitant]
     Dates: start: 20020315, end: 20031105
  5. LACTOSE [Concomitant]
     Dates: start: 20020315, end: 20031105

REACTIONS (3)
  - BLADDER TAMPONADE [None]
  - CYSTITIS HAEMORRHAGIC [None]
  - RENAL FAILURE [None]
